FAERS Safety Report 13721527 (Version 1)
Quarter: 2017Q3

REPORT INFORMATION
  Report Type: Spontaneous
  Country: CN (occurrence: CN)
  Receive Date: 20170706
  Receipt Date: 20170706
  Transmission Date: 20171127
  Serious: Yes (Other)
  Sender: FDA-Public Use
  Company Number: CN-ROCHE-1959658

PATIENT
  Age: 60 Year
  Sex: Male
  Weight: 69 kg

DRUGS (3)
  1. CAMPTO [Suspect]
     Active Substance: IRINOTECAN
     Indication: RECTAL ADENOCARCINOMA
     Dosage: ON DAY 1?THIRD CYCLE OF CHEMOTHERAPY WAS STARTED ON 09/JAN/2017
     Route: 041
  2. AVASTIN [Suspect]
     Active Substance: BEVACIZUMAB
     Indication: RECTAL ADENOCARCINOMA
     Dosage: ON DAY1, PER 14 DAYS?THIRD CYCLE OF CHEMOTHERAPY WAS STARTED ON 09/JAN/2017
     Route: 041
  3. RALTITREXED [Suspect]
     Active Substance: RALTITREXED
     Indication: RECTAL ADENOCARCINOMA
     Dosage: ON DAY 1?THIRD CYCLE OF CHEMOTHERAPY WAS STARTED ON 09/JAN/2017
     Route: 041

REACTIONS (1)
  - Bone marrow failure [Recovering/Resolving]

NARRATIVE: CASE EVENT DATE: 20170123
